FAERS Safety Report 16390437 (Version 1)
Quarter: 2019Q2

REPORT INFORMATION
  Report Type: Spontaneous
  Country: US (occurrence: US)
  Receive Date: 20190429
  Receipt Date: 20190429
  Transmission Date: 20190711
  Serious: Yes (Life-Threatening)
  Sender: FDA-Public Use
  Company Number: None

PATIENT
  Age: 63 Year
  Sex: Male
  Weight: 67.13 kg

DRUGS (3)
  1. XELODA [Concomitant]
     Active Substance: CAPECITABINE
  2. OXALIPLATIN VIAL [Suspect]
     Active Substance: OXALIPLATIN
     Indication: RECTAL CANCER
     Dosage: ?          OTHER FREQUENCY:Q21 DAYS;?
     Route: 042
     Dates: start: 20190424
  3. OXALIPLATIN. [Suspect]
     Active Substance: OXALIPLATIN

REACTIONS (2)
  - Tenderness [None]
  - Infusion related reaction [None]

NARRATIVE: CASE EVENT DATE: 20190424
